FAERS Safety Report 7626416-8 (Version None)
Quarter: 2011Q3

REPORT INFORMATION
  Report Type: 
  Country: None (occurrence: None)
  Receive Date: 20110721
  Receipt Date: 20110718
  Transmission Date: 20111222
  Serious: No
  Sender: FDA-Public Use
  Company Number: FR-ROCHE-783969

PATIENT
  Sex: Male
  Weight: 85 kg

DRUGS (7)
  1. MORPHINE [Concomitant]
     Dates: start: 20090107
  2. TOCILIZUMAB [Suspect]
     Indication: ANKYLOSING SPONDYLITIS
     Dosage: INFUSION; LAST DOSE PRIOR TO SAE: 18 MAY 2011.
     Route: 042
     Dates: start: 20110518, end: 20110615
  3. RISPERIDONE [Concomitant]
     Dates: start: 20110421
  4. DOMPERIDONE [Concomitant]
     Dosage: TDD: 1 CC/D
     Dates: start: 20110615
  5. CLONAZEPAM [Concomitant]
     Dates: start: 20110405
  6. ZOPICLONE [Concomitant]
     Dates: start: 20110405
  7. ACIDE N-ACETYL-ASPARTYL-GLUTAMIQUE [Concomitant]
     Dosage: DOSE: 2PQ X 3 D
     Dates: start: 20110525

REACTIONS (1)
  - TRANSIENT ISCHAEMIC ATTACK [None]
